FAERS Safety Report 20423214 (Version 1)
Quarter: 2022Q1

REPORT INFORMATION
  Report Type: Spontaneous
  Country: US (occurrence: None)
  Receive Date: 20220203
  Receipt Date: 20220203
  Transmission Date: 20220423
  Serious: Yes (Disabling, Other)
  Sender: FDA-Public Use
  Company Number: None

PATIENT
  Age: 52 Year
  Sex: Female
  Weight: 66.15 kg

DRUGS (1)
  1. TORADOL [Suspect]
     Active Substance: KETOROLAC TROMETHAMINE
     Indication: Inflammation
     Dosage: OTHER FREQUENCY : ONCE;?
     Route: 030
     Dates: start: 20220122, end: 20220122

REACTIONS (4)
  - Headache [None]
  - Vision blurred [None]
  - Nausea [None]
  - Angle closure glaucoma [None]

NARRATIVE: CASE EVENT DATE: 20220122
